FAERS Safety Report 12756418 (Version 1)
Quarter: 2016Q3

REPORT INFORMATION
  Report Type: Spontaneous
  Country: US (occurrence: US)
  Receive Date: 20160916
  Receipt Date: 20160916
  Transmission Date: 20161109
  Serious: No
  Sender: FDA-Public Use
  Company Number: US-ASTRAZENECA-2016SE86926

PATIENT
  Age: 29188 Day
  Sex: Female
  Weight: 55.3 kg

DRUGS (3)
  1. NEXIUM [Suspect]
     Active Substance: ESOMEPRAZOLE MAGNESIUM
     Indication: DYSPEPSIA
     Dosage: DAILY
     Route: 048
  2. NEXIUM [Suspect]
     Active Substance: ESOMEPRAZOLE MAGNESIUM
     Indication: EROSIVE OESOPHAGITIS
     Dosage: DAILY
     Route: 048
  3. MAGNESIUM [Concomitant]
     Active Substance: MAGNESIUM
     Dosage: 800 MG A DAY

REACTIONS (24)
  - Heart rate irregular [Recovered/Resolved]
  - Pain in extremity [Not Recovered/Not Resolved]
  - Stress [Unknown]
  - Eye contusion [Not Recovered/Not Resolved]
  - Osteoporosis [Not Recovered/Not Resolved]
  - Muscular weakness [Unknown]
  - Blood pressure fluctuation [Recovered/Resolved]
  - Tremor [Not Recovered/Not Resolved]
  - Head injury [Not Recovered/Not Resolved]
  - Osteopenia [Not Recovered/Not Resolved]
  - Dysphonia [Recovered/Resolved]
  - Abasia [Recovered/Resolved]
  - Loss of consciousness [Unknown]
  - Hypokinesia [Recovered/Resolved]
  - Myalgia [Recovered/Resolved]
  - Balance disorder [Not Recovered/Not Resolved]
  - Jaw disorder [Unknown]
  - Feeding disorder [Recovered/Resolved]
  - Body height decreased [Unknown]
  - Bone pain [Recovered/Resolved]
  - Dizziness [Recovered/Resolved]
  - Magnesium deficiency [Not Recovered/Not Resolved]
  - Feeling abnormal [Unknown]
  - Ulcer [Unknown]

NARRATIVE: CASE EVENT DATE: 20160809
